FAERS Safety Report 23090043 (Version 1)
Quarter: 2023Q4

REPORT INFORMATION
  Report Type: Spontaneous
  Country: IT (occurrence: IT)
  Receive Date: 20231020
  Receipt Date: 20231020
  Transmission Date: 20240110
  Serious: Yes (Life-Threatening, Other)
  Sender: FDA-Public Use
  Company Number: IT-PFIZER INC-PV202300169210

PATIENT
  Age: 11 Month
  Sex: Male
  Weight: 8 kg

DRUGS (3)
  1. VINCRISTINE SULFATE [Suspect]
     Active Substance: VINCRISTINE SULFATE
     Indication: Nephroblastoma
     Dosage: 0.05 MG/KG, CYCLIC
  2. DOXORUBICIN HYDROCHLORIDE [Suspect]
     Active Substance: DOXORUBICIN HYDROCHLORIDE
     Indication: Nephroblastoma
     Dosage: 1.3 MG/KG, CYCLIC
  3. ACTINOMYCIN D [Suspect]
     Active Substance: DACTINOMYCIN
     Indication: Nephroblastoma
     Dosage: 0.045 MG/KG, CYCLIC

REACTIONS (1)
  - Venoocclusive liver disease [Recovered/Resolved]
